FAERS Safety Report 7102289-7 (Version None)
Quarter: 2010Q4

REPORT INFORMATION
  Report Type: 
  Country: None (occurrence: None)
  Receive Date: 20101115
  Receipt Date: 20101103
  Transmission Date: 20110411
  Serious: No
  Sender: FDA-Public Use
  Company Number: US-BIOGENIDEC-2010BI039087

PATIENT
  Sex: Female

DRUGS (1)
  1. TYSABRI [Suspect]
     Indication: MULTIPLE SCLEROSIS
     Route: 042
     Dates: start: 20100915

REACTIONS (4)
  - FIBROMYALGIA [None]
  - MULTIPLE SCLEROSIS RELAPSE [None]
  - MUSCLE STRAIN [None]
  - VISUAL ACUITY REDUCED [None]
